FAERS Safety Report 8003750-3 (Version None)
Quarter: 2011Q4

REPORT INFORMATION
  Report Type: 
  Country: None (occurrence: None)
  Receive Date: 20111222
  Receipt Date: 20111214
  Transmission Date: 20120403
  Serious: Yes (Death, Hospitalization)
  Sender: FDA-Public Use
  Company Number: US-SANOFI-AVENTIS-2011SA078684

PATIENT
  Age: 77 Year
  Sex: Male
  Weight: 102 kg

DRUGS (23)
  1. METOPROLOL SUCCINATE [Concomitant]
     Indication: HYPERTENSION
     Dates: start: 20100901
  2. PHENYLPROPANOLAMINE HYDROCHLORIDE AND PARACETAMOL AND DIPHENHYDRAMINE [Concomitant]
     Indication: PREMEDICATION
     Dates: start: 20111107
  3. MORPHINE SULFATE [Concomitant]
     Dosage: AS NEEDED
     Dates: start: 20110822
  4. RANITIDINE HYDROCHLORIDE [Concomitant]
     Indication: PREMEDICATION
     Dates: start: 20111107
  5. FISH OIL [Concomitant]
     Dates: start: 20090101
  6. MORPHINE SULFATE [Concomitant]
     Indication: BACK PAIN
     Dates: start: 20100601
  7. INVESTIGATIONAL DRUG [Suspect]
     Route: 048
     Dates: start: 20111107, end: 20111109
  8. GRANISETRON HCL [Concomitant]
     Indication: PREMEDICATION
     Dates: start: 20111107
  9. MORPHINE SULFATE [Concomitant]
     Dosage: AS NEEDED
     Dates: start: 20110822
  10. LANSOPRAZOLE [Concomitant]
     Dates: start: 20110408
  11. TEMAZEPAM [Concomitant]
     Indication: INSOMNIA
     Dates: start: 20100401
  12. CELECOXIB [Concomitant]
     Indication: DEPRESSION
     Dates: start: 19910101
  13. ISOSORBIDE DINITRATE [Concomitant]
     Indication: ANGINA PECTORIS
     Dates: start: 20100901
  14. DEXAMETHASONE ACETATE [Concomitant]
     Indication: PREMEDICATION
     Dates: start: 20111107
  15. SENNOSIDE A+B CALCIUM [Concomitant]
     Indication: CONSTIPATION
     Dates: start: 20090101
  16. VITAMIN TAB [Concomitant]
     Dosage: DOSE:1 UNIT(S)
     Dates: start: 20090101
  17. MORPHINE SULFATE [Concomitant]
     Dates: start: 20100601
  18. PYRIDOXINE HCL [Concomitant]
     Dosage: 50-100 MG DAILY
     Dates: start: 20111110
  19. ZOLEDRONIC ACID [Concomitant]
     Dates: start: 20111107
  20. GLYCERYL TRINITRATE [Concomitant]
     Indication: ANGINA PECTORIS
     Dates: start: 20100901
  21. DOCETAXEL [Suspect]
     Route: 041
     Dates: start: 20111107, end: 20111107
  22. ALLOPURINOL [Concomitant]
     Indication: GOUT
     Dates: start: 19760101
  23. PYRIDOXINE HCL [Concomitant]
     Dosage: 50-100 MG DAILY
     Dates: start: 20111110

REACTIONS (3)
  - PERIPHERAL SENSORY NEUROPATHY [None]
  - PAIN [None]
  - DEATH [None]
